FAERS Safety Report 15569027 (Version 3)
Quarter: 2020Q3

REPORT INFORMATION
  Report Type: Report from Study
  Country: US (occurrence: US)
  Receive Date: 20181031
  Receipt Date: 20191210
  Transmission Date: 20201104
  Serious: Yes (Hospitalization, Other)
  Sender: FDA-Public Use
  Company Number: US-ROCHE-2204032

PATIENT
  Age: 27 Year
  Sex: Male

DRUGS (9)
  1. NOVOSEVEN [Concomitant]
     Active Substance: COAGULATION FACTOR VIIA RECOMBINANT HUMAN
     Indication: METRORRHAGIA
     Dosage: START DATE } 9 MONTHS 2 UNITS, FOR 48 HOURS
     Route: 042
     Dates: start: 20180912
  2. FENTANYL. [Concomitant]
     Active Substance: FENTANYL
  3. PROPOFOL. [Concomitant]
     Active Substance: PROPOFOL
  4. OBIZUR [Concomitant]
     Active Substance: ANTIHEMOPHILIC FACTOR PORCINE, B-DOMAIN TRUNCATED RECOMBINANT
  5. ROCURONIUM [Concomitant]
     Active Substance: ROCURONIUM BROMIDE
  6. KETAMINE [Concomitant]
     Active Substance: KETAMINE
  7. FEIBA [Suspect]
     Active Substance: ANTI-INHIBITOR COAGULANT COMPLEX
     Indication: POST PROCEDURAL HAEMORRHAGE
     Dosage: 5000 UNIT
     Route: 042
     Dates: start: 20180912, end: 20180914
  8. MIDAZOLAM HYDROCHLORIDE. [Concomitant]
     Active Substance: MIDAZOLAM HYDROCHLORIDE
  9. EMICIZUMAB. [Suspect]
     Active Substance: EMICIZUMAB
     Indication: FACTOR VIII DEFICIENCY
     Dosage: MAINTENANCE DOSE
     Route: 058

REACTIONS (5)
  - Thrombotic microangiopathy [Recovered/Resolved]
  - Priapism [Recovered/Resolved with Sequelae]
  - Urethral abscess [Recovered/Resolved with Sequelae]
  - Necrosis [Recovered/Resolved with Sequelae]
  - Postoperative ileus [Recovered/Resolved]

NARRATIVE: CASE EVENT DATE: 20180914
